FAERS Safety Report 24755297 (Version 1)
Quarter: 2024Q4

REPORT INFORMATION
  Report Type: Spontaneous
  Country: FR (occurrence: FR)
  Receive Date: 20241219
  Receipt Date: 20241219
  Transmission Date: 20250115
  Serious: Yes (Other)
  Sender: MYLAN
  Company Number: None

PATIENT
  Age: 13 Year
  Sex: Female
  Weight: 50 kg

DRUGS (1)
  1. ACETAMINOPHEN [Suspect]
     Active Substance: ACETAMINOPHEN
     Indication: Headache
     Dosage: 10 GRAM, TOTAL (10 GRAMS IN 36 HOURS)
     Route: 048
     Dates: start: 20240915, end: 20240916

REACTIONS (4)
  - Abdominal pain [Recovered/Resolved]
  - Incorrect dose administered [Recovered/Resolved]
  - Abdominal pain lower [Unknown]
  - Intentional overdose [Recovered/Resolved]

NARRATIVE: CASE EVENT DATE: 20240916
